FAERS Safety Report 5246130-6 (Version None)
Quarter: 2007Q1

REPORT INFORMATION
  Report Type: 
  Country: None (occurrence: None)
  Receive Date: 20070220
  Receipt Date: 20070205
  Transmission Date: 20070707
  Serious: Yes (Disabling, Other)
  Sender: FDA-Public Use
  Company Number: 233390

PATIENT
  Age: 59 Year
  Sex: Male
  Weight: 109 kg

DRUGS (3)
  1. OMALIZUMAB OR PLACEBO (CODE NOT BROKE) PWDR + SOLVENT, INJECTION SOLN, [Suspect]
     Indication: ASTHMA
     Dosage: Q2W
     Dates: start: 20020101, end: 20020601
  2. ESOMEPRAZOLE (ESOMEPRAZOLE MAGNESIUM) [Concomitant]
  3. RAMIPRIL [Concomitant]

REACTIONS (1)
  - ARTHRITIS [None]
